FAERS Safety Report 4660465-7 (Version None)
Quarter: 2005Q2

REPORT INFORMATION
  Report Type: 
  Country: None (occurrence: None)
  Receive Date: 20050512
  Receipt Date: 20050418
  Transmission Date: 20051028
  Serious: Yes (Other)
  Sender: FDA-Public Use
  Company Number: TZ-GLAXOSMITHKLINE-B0378365A

PATIENT
  Age: 33 Year
  Sex: Male
  Weight: 56 kg

DRUGS (4)
  1. TRIZIVIR [Suspect]
     Indication: HIV INFECTION
     Dosage: 1TAB TWICE PER DAY
     Route: 048
     Dates: start: 20050314
  2. ISONIAZID [Concomitant]
  3. ETHAMBUTOL HCL [Concomitant]
  4. RIMACTAZID [Concomitant]

REACTIONS (3)
  - CONFUSIONAL STATE [None]
  - MENINGISM [None]
  - MENINGITIS CRYPTOCOCCAL [None]
